FAERS Safety Report 10261742 (Version 2)
Quarter: 2014Q2

REPORT INFORMATION
  Report Type: Spontaneous
  Country: US (occurrence: US)
  Receive Date: 20140626
  Receipt Date: 20140626
  Transmission Date: 20141212
  Serious: Yes (Other)
  Sender: FDA-Public Use
  Company Number: PHHY2014US066602

PATIENT
  Age: 62 Year
  Sex: Male

DRUGS (27)
  1. LIORESAL INTRATECAL [Suspect]
     Indication: MUSCLE SPASTICITY
     Dosage: 200 UG, DAY
     Route: 037
  2. LIORESAL INTRATECAL [Suspect]
     Dosage: 674.5 UG/DAY
     Route: 037
  3. MORPHINE [Suspect]
     Indication: MUSCLE SPASTICITY
     Dosage: 0.17 MG/DAY
     Route: 037
  4. BUPIVACAINE [Suspect]
     Dosage: 0.67 MG/DAY
     Route: 037
  5. CAPSAICIN [Suspect]
     Dosage: UNK UKN, UNK
  6. HYDROCODONE [Suspect]
     Dosage: 5 UKN, UNK
  7. BACLOFEN [Suspect]
     Dosage: 10 UKN, UNK
  8. BUSPIRONE HYDROCHLORIDE TABLETS USP [Suspect]
     Dosage: UNK UKN, UNK
  9. DOCUSATE [Suspect]
     Dosage: UNK UKN, UNK
  10. FISH OIL [Suspect]
     Dosage: UNK UKN, UNK
  11. PHENYLEPHRINE [Suspect]
     Dosage: UNK UKN, UNK
  12. MECLIZINE [Suspect]
     Dosage: UNK UKN, UNK
  13. OXYBUTYNIN [Suspect]
     Dosage: UNK UKN, UNK
  14. PANTOPRAZOLE [Suspect]
     Dosage: UNK UKN, UNK
  15. POLYETHYLENE [Suspect]
     Dosage: UNK UKN, UNK
  16. POTASSIUM CHLORIDE [Suspect]
     Dosage: UNK UKN, UNK
  17. RANITIDINE [Suspect]
     Dosage: UNK UKN, UNK
  18. SERTRALINE [Suspect]
     Dosage: UNK UKN, UNK
  19. TAMSULOSIN [Suspect]
     Dosage: UNK UKN, UNK
  20. PHENAZOPYRIDINE [Suspect]
     Dosage: UNK UKN, UNK
  21. PROMETHAZINE HCL TABLETS USP [Suspect]
     Dosage: UNK UKN, UNK
  22. SIMVASTATIN [Suspect]
     Dosage: UNK UKN, UNK
  23. ACETYLSALICYLIC ACID [Suspect]
     Dosage: 81 UKN, UNK
  24. HYOSCYAMINE [Suspect]
     Dosage: UNK UKN, UNK
  25. LUBIPROSTONE [Suspect]
     Dosage: UNK UKN, UNK
  26. PREGABALIN [Suspect]
     Dosage: UNK UKN, UNK
  27. FUROSEMIDE [Suspect]
     Dosage: UNK UKN, UNK

REACTIONS (3)
  - Unevaluable event [Recovered/Resolved]
  - Muscle spasms [Recovering/Resolving]
  - No therapeutic response [Recovered/Resolved]
